FAERS Safety Report 24360595 (Version 1)
Quarter: 2024Q3

REPORT INFORMATION
  Report Type: Spontaneous
  Country: CN (occurrence: CN)
  Receive Date: 20240925
  Receipt Date: 20240925
  Transmission Date: 20241016
  Serious: Yes (Other)
  Sender: GLAND PHARMA
  Company Number: CN-GLANDPHARMA-CN-2024GLNLIT00791

PATIENT

DRUGS (1)
  1. CISPLATIN [Suspect]
     Active Substance: CISPLATIN
     Indication: Oesophageal squamous cell carcinoma
     Route: 042

REACTIONS (2)
  - Oesophagomediastinal fistula [Recovering/Resolving]
  - Product use in unapproved indication [Unknown]
